FAERS Safety Report 21722754 (Version 1)
Quarter: 2022Q4

REPORT INFORMATION
  Report Type: Spontaneous
  Country: US (occurrence: None)
  Receive Date: 20221213
  Receipt Date: 20221213
  Transmission Date: 20230113
  Serious: No
  Sender: FDA-Public Use
  Company Number: 2022A383234

PATIENT
  Age: 990 Month
  Sex: Female
  Weight: 56.7 kg

DRUGS (1)
  1. SYMBICORT [Suspect]
     Active Substance: BUDESONIDE\FORMOTEROL FUMARATE DIHYDRATE
     Indication: Asthma
     Dosage: 160/4.5 MCG, 120 INHALATIONS, BY INHALATION, TWO PUFFS TWICE A DAY
     Route: 055
     Dates: start: 202210

REACTIONS (2)
  - Oropharyngeal pain [Not Recovered/Not Resolved]
  - Bradykinesia [Unknown]

NARRATIVE: CASE EVENT DATE: 20221101
